FAERS Safety Report 7065126-5 (Version None)
Quarter: 2010Q4

REPORT INFORMATION
  Report Type: 
  Country: None (occurrence: None)
  Receive Date: 20101022
  Receipt Date: 20101022
  Transmission Date: 20110411
  Serious: Yes (Hospitalization, Disabling, Other)
  Sender: FDA-Public Use
  Company Number: None

PATIENT
  Age: 56 Year
  Sex: Female
  Weight: 48.9885 kg

DRUGS (1)
  1. RECLAST [Suspect]
     Indication: OSTEOPOROSIS
     Dosage: ONE BOTTLE ONCE A YEAR IV DRIP
     Route: 041
     Dates: start: 20101011, end: 20101011

REACTIONS (12)
  - ABDOMINAL DISTENSION [None]
  - BLADDER SPASM [None]
  - BLOOD CREATININE INCREASED [None]
  - BONE PAIN [None]
  - BOWEL MOVEMENT IRREGULARITY [None]
  - CONSTIPATION [None]
  - DRY MOUTH [None]
  - INFLUENZA LIKE ILLNESS [None]
  - OEDEMA PERIPHERAL [None]
  - THIRST [None]
  - URINARY RETENTION [None]
  - URINE OUTPUT DECREASED [None]
